FAERS Safety Report 11651903 (Version 1)
Quarter: 2015Q4

REPORT INFORMATION
  Report Type: Spontaneous
  Country: GR (occurrence: GR)
  Receive Date: 20151022
  Receipt Date: 20151022
  Transmission Date: 20160304
  Serious: Yes (Hospitalization, Other)
  Sender: FDA-Public Use
  Company Number: GR-ACTAVIS-2015-22699

PATIENT
  Age: 34 Year
  Sex: Male

DRUGS (4)
  1. HALOPERIDOL (UNKNOWN) [Interacting]
     Active Substance: HALOPERIDOL
     Indication: PSYCHOTIC DISORDER
     Dosage: 20 MG, TOTAL
     Route: 065
  2. BIPERIDEN [Interacting]
     Active Substance: BIPERIDEN
     Indication: PSYCHOTIC DISORDER
     Dosage: 20 MG, TOTAL
     Route: 042
  3. CHLORPROMAZINE HYDROCHLORIDE (WATSON LABORATORIES) [Suspect]
     Active Substance: CHLORPROMAZINE HYDROCHLORIDE
     Indication: PSYCHOTIC DISORDER
     Dosage: 100 MG, TOTAL
     Route: 042
  4. SERTRALINE [Interacting]
     Active Substance: SERTRALINE HYDROCHLORIDE
     Indication: MAJOR DEPRESSION
     Dosage: 400 MG, TOTAL
     Route: 065

REACTIONS (6)
  - Delirium [Recovered/Resolved]
  - Accidental overdose [Recovered/Resolved]
  - Medication error [Recovered/Resolved]
  - Psychotic disorder [Recovered/Resolved]
  - Aspartate aminotransferase increased [Unknown]
  - Potentiating drug interaction [Recovered/Resolved]
